FAERS Safety Report 21258466 (Version 1)
Quarter: 2022Q3

REPORT INFORMATION
  Report Type: Spontaneous
  Country: US (occurrence: US)
  Receive Date: 20220826
  Receipt Date: 20220826
  Transmission Date: 20221026
  Serious: Yes (Other)
  Sender: FDA-Public Use
  Company Number: US-BAYER-2022A119851

PATIENT
  Age: 34 Year
  Sex: Female

DRUGS (1)
  1. MIRENA [Suspect]
     Active Substance: LEVONORGESTREL
     Indication: Contraceptive implant
     Dosage: 20?G/DAY
     Route: 015
     Dates: start: 20210215, end: 202104

REACTIONS (3)
  - Genital haemorrhage [Recovered/Resolved]
  - Abdominal pain lower [Recovered/Resolved]
  - Pyrexia [Recovered/Resolved]
